FAERS Safety Report 4912515-8 (Version None)
Quarter: 2006Q1

REPORT INFORMATION
  Report Type: 
  Country: None (occurrence: None)
  Receive Date: 20060215
  Receipt Date: 20050606
  Transmission Date: 20060701
  Serious: No
  Sender: FDA-Public Use
  Company Number: US-GLAXOSMITHKLINE-A0561407A

PATIENT
  Age: 66 Year
  Sex: Male

DRUGS (5)
  1. VALTREX [Suspect]
     Dosage: 500MG TWICE PER DAY
     Route: 048
  2. INSULIN [Concomitant]
  3. DIAZEPAM [Concomitant]
  4. TYLENOL W/ CODEINE NO. 4 [Concomitant]
  5. SYNTHROID [Concomitant]

REACTIONS (1)
  - DRUG INEFFECTIVE [None]
